FAERS Safety Report 11916335 (Version 4)
Quarter: 2016Q1

REPORT INFORMATION
  Report Type: Spontaneous
  Country: JP (occurrence: JP)
  Receive Date: 20160114
  Receipt Date: 20160216
  Transmission Date: 20160526
  Serious: Yes (Other)
  Sender: FDA-Public Use
  Company Number: JP-PFIZER INC-2016015900

PATIENT
  Age: 67 Year
  Sex: Male
  Weight: 82 kg

DRUGS (6)
  1. CELECOX [Suspect]
     Active Substance: CELECOXIB
     Indication: PAIN
     Dosage: 100 MG, 2X/DAY
     Route: 048
     Dates: start: 20150604, end: 20151224
  2. CELECOX [Suspect]
     Active Substance: CELECOXIB
     Indication: RHEUMATOID ARTHRITIS
  3. ACTEMRA [Concomitant]
     Active Substance: TOCILIZUMAB
     Dosage: 162 MG, WEEKLY
     Route: 058
     Dates: start: 20140515
  4. MUCOSTA [Concomitant]
     Active Substance: REBAMIPIDE
     Indication: RHEUMATOID ARTHRITIS
     Dosage: 100 MG, 2X/DAY
     Route: 048
     Dates: start: 20150604, end: 20151224
  5. PREDONINE [Concomitant]
     Active Substance: PREDNISOLONE\PREDNISOLONE ACETATE\PREDNISOLONE SODIUM SUCCINATE
     Indication: PAIN
     Dosage: 5 MG, 1X/DAY
     Route: 048
     Dates: start: 20150604, end: 20151224
  6. PREDONINE [Concomitant]
     Active Substance: PREDNISOLONE\PREDNISOLONE ACETATE\PREDNISOLONE SODIUM SUCCINATE
     Indication: RHEUMATOID ARTHRITIS

REACTIONS (2)
  - Hepatic neoplasm [Not Recovered/Not Resolved]
  - Malaise [Not Recovered/Not Resolved]

NARRATIVE: CASE EVENT DATE: 20151006
